FAERS Safety Report 4778887-2 (Version None)
Quarter: 2005Q3

REPORT INFORMATION
  Report Type: 
  Country: None (occurrence: None)
  Receive Date: 20050926
  Receipt Date: 20050916
  Transmission Date: 20060218
  Serious: Yes (Hospitalization, Other)
  Sender: FDA-Public Use
  Company Number: JP-NOVOPROD-247038

PATIENT
  Age: 63 Year
  Sex: Female
  Weight: 45 kg

DRUGS (5)
  1. NOVOLIN R [Suspect]
     Indication: BLOOD GLUCOSE INCREASED
     Dosage: 6 U, UNK
     Dates: start: 20050909
  2. NOVOLIN N [Suspect]
     Indication: BLOOD GLUCOSE INCREASED
     Dosage: 2 U, UNK
     Dates: start: 20050909
  3. PREDNISOLONE [Concomitant]
     Indication: SYSTEMIC LUPUS ERYTHEMATOSUS
     Dosage: 40 MG, UNK
     Route: 048
     Dates: start: 20050802
  4. AMLODIPINE BESYLATE [Concomitant]
     Dosage: 7.5 MG, UNK
     Route: 048
     Dates: start: 20050719
  5. RABEPRAZOLE SODIUM [Concomitant]
     Indication: GASTRIC ULCER
     Dosage: 20 MG, UNK
     Route: 048
     Dates: start: 20050802

REACTIONS (4)
  - LYMPHOCYTE COUNT INCREASED [None]
  - MONOCYTE COUNT INCREASED [None]
  - NEUTROPHIL COUNT DECREASED [None]
  - WHITE BLOOD CELL COUNT DECREASED [None]
